FAERS Safety Report 4512427-8 (Version None)
Quarter: 2004Q4

REPORT INFORMATION
  Report Type: 
  Country: None (occurrence: None)
  Receive Date: 20041124
  Receipt Date: 20041104
  Transmission Date: 20050328
  Serious: Yes (Death, Hospitalization, Other)
  Sender: FDA-Public Use
  Company Number: USA041183186

PATIENT
  Age: 28 Year
  Sex: Female

DRUGS (3)
  1. INSULIN-INSULIN-ANIMAL (INSUL [Suspect]
     Indication: DIABETES MELLITUS
     Dates: start: 19620401
  2. INSULIN-INSULIN-ANIMAL (UNKNOWN FORMULATION) (INSUL [Suspect]
     Indication: DIABETES MELLITUS
     Dates: start: 19620401
  3. HUMULIN R [Suspect]
     Indication: DIABETES MELLITUS

REACTIONS (14)
  - ADVERSE DRUG REACTION [None]
  - BLINDNESS [None]
  - DIALYSIS [None]
  - FRACTURE [None]
  - IMPAIRED SELF-CARE [None]
  - KIDNEY TRANSPLANT REJECTION [None]
  - LOCALISED INFECTION [None]
  - NEUROPATHY [None]
  - PANCREAS ISLET CELL TRANSPLANT [None]
  - PERONEAL NERVE PALSY [None]
  - PREGNANCY [None]
  - RENAL FAILURE [None]
  - RENAL TRANSPLANT [None]
  - ROAD TRAFFIC ACCIDENT [None]
